FAERS Safety Report 25128717 (Version 1)
Quarter: 2025Q1

REPORT INFORMATION
  Report Type: Spontaneous
  Country: US (occurrence: US)
  Receive Date: 20250327
  Receipt Date: 20250327
  Transmission Date: 20250409
  Serious: No
  Sender: SANOFI AVENTIS
  Company Number: US-SANOFI-02458610

PATIENT
  Age: 67 Year
  Sex: Male

DRUGS (1)
  1. LANTUS SOLOSTAR [Suspect]
     Active Substance: INSULIN GLARGINE
     Indication: Diabetes mellitus
     Dosage: 25 IU, BID
     Route: 065

REACTIONS (3)
  - Decreased gait velocity [Unknown]
  - Hip surgery [Unknown]
  - Off label use [Unknown]

NARRATIVE: CASE EVENT DATE: 20250101
